FAERS Safety Report 25400528 (Version 1)
Quarter: 2025Q2

REPORT INFORMATION
  Report Type: Spontaneous
  Country: US (occurrence: None)
  Receive Date: 20250604
  Receipt Date: 20250604
  Transmission Date: 20250717
  Serious: Yes (Hospitalization)
  Sender: FDA-CTU
  Company Number: None

PATIENT
  Age: 37 Year
  Sex: Female

DRUGS (1)
  1. OCTAGAM IMMUNE GLOBULIN (HUMAN) [Suspect]
     Active Substance: HUMAN IMMUNOGLOBULIN G
     Dosage: OTHER QUANTITY : OCTAGAM 58 GRAMS IV;?FREQUENCY : MONTHLY;?

REACTIONS (3)
  - Vocal cord paralysis [None]
  - Dyspnoea [None]
  - Myasthenia gravis [None]

NARRATIVE: CASE EVENT DATE: 20250601
